FAERS Safety Report 5510459-4 (Version None)
Quarter: 2007Q4

REPORT INFORMATION
  Report Type: 
  Country: None (occurrence: None)
  Receive Date: 20071108
  Receipt Date: 20071029
  Transmission Date: 20080405
  Serious: Yes (Hospitalization, Other)
  Sender: FDA-Public Use
  Company Number: GB-ABBOTT-07P-167-0420173-00

PATIENT
  Age: 28 Year
  Sex: Female
  Weight: 95 kg

DRUGS (3)
  1. HUMIRA [Suspect]
     Indication: CROHN'S DISEASE
     Route: 058
     Dates: start: 20070713, end: 20070713
  2. HUMIRA [Suspect]
     Route: 058
     Dates: start: 20070713, end: 20070730
  3. METHOTREXATE [Concomitant]
     Indication: DRUG USE FOR UNKNOWN INDICATION
     Route: 048
     Dates: start: 20070201

REACTIONS (3)
  - ANXIETY [None]
  - CROHN'S DISEASE [None]
  - OESOPHAGITIS [None]
